FAERS Safety Report 8342783-4 (Version None)
Quarter: 2012Q2

REPORT INFORMATION
  Report Type: 
  Country: None (occurrence: None)
  Receive Date: 20120503
  Receipt Date: 20101124
  Transmission Date: 20120825
  Serious: Yes (Hospitalization)
  Sender: FDA-Public Use
  Company Number: BE-021482

PATIENT
  Age: 53 Year
  Sex: Female
  Weight: 24.8571 kg

DRUGS (2)
  1. CHLORAMBUCIL [Suspect]
     Indication: CHRONIC LYMPHOCYTIC LEUKAEMIA
     Dosage: 10 MG/M2 QD
     Route: 048
     Dates: start: 20090325
  2. OFATUMUMAB [Suspect]
     Indication: PRODUCT USED FOR UNKNOWN INDICATION
     Route: 042

REACTIONS (4)
  - GIARDIASIS [None]
  - SEPTIC SHOCK [None]
  - PNEUMONIA [None]
  - ASTHENIA [None]
